FAERS Safety Report 15647637 (Version 1)
Quarter: 2018Q4

REPORT INFORMATION
  Report Type: Report from Study
  Country: CA (occurrence: CA)
  Receive Date: 20181122
  Receipt Date: 20181122
  Transmission Date: 20190205
  Serious: Yes (Other)
  Sender: FDA-Public Use
  Company Number: CA-BRISTOL-MYERS SQUIBB COMPANY-BMS-2017-065234

PATIENT
  Age: 78 Year
  Sex: Male

DRUGS (2)
  1. ABATACEPT [Suspect]
     Active Substance: ABATACEPT
     Indication: PRODUCT USED FOR UNKNOWN INDICATION
     Dosage: 500 MG, Q4WK
     Route: 042
     Dates: start: 20140509
  2. ABATACEPT [Suspect]
     Active Substance: ABATACEPT
     Indication: RHEUMATOID ARTHRITIS
     Dosage: 750 MG, Q4WK
     Route: 042
     Dates: start: 20140509

REACTIONS (15)
  - Fatigue [Not Recovered/Not Resolved]
  - Weight decreased [Unknown]
  - Asthenia [Unknown]
  - Poor quality sleep [Unknown]
  - Neoplasm malignant [Unknown]
  - Hypotension [Unknown]
  - Chills [Unknown]
  - Sinus congestion [Unknown]
  - Hepatic enzyme increased [Unknown]
  - Muscular weakness [Recovered/Resolved]
  - Papilloma excision [Recovering/Resolving]
  - Rhinorrhoea [Unknown]
  - Musculoskeletal pain [Unknown]
  - Malaise [Unknown]
  - Nasopharyngitis [Unknown]

NARRATIVE: CASE EVENT DATE: 20180208
